FAERS Safety Report 7963273-4 (Version None)
Quarter: 2011Q4

REPORT INFORMATION
  Report Type: 
  Country: None (occurrence: None)
  Receive Date: 20111208
  Receipt Date: 20111130
  Transmission Date: 20120403
  Serious: No
  Sender: FDA-Public Use
  Company Number: US-BIOGENIDEC-2011BI045570

PATIENT
  Age: 41 Year
  Sex: Female

DRUGS (4)
  1. TYSABRI [Suspect]
     Indication: MULTIPLE SCLEROSIS
     Route: 042
     Dates: start: 20100824
  2. TYSABRI [Suspect]
     Route: 042
     Dates: start: 20070404, end: 20070621
  3. AVONEX [Concomitant]
     Indication: MULTIPLE SCLEROSIS
     Route: 030
     Dates: start: 20010115
  4. TYSABRI [Suspect]
     Route: 042
     Dates: start: 20050121

REACTIONS (1)
  - VISUAL IMPAIRMENT [None]
